FAERS Safety Report 7002226-X (Version None)
Quarter: 2010Q3

REPORT INFORMATION
  Report Type: 
  Country: None (occurrence: None)
  Receive Date: 20100920
  Receipt Date: 20070725
  Transmission Date: 20110219
  Serious: Yes (Disabling, Other)
  Sender: FDA-Public Use
  Company Number: US-ASTRAZENECA-2006UW22612

PATIENT
  Age: 18675 Day
  Sex: Male
  Weight: 93.4 kg

DRUGS (3)
  1. SEROQUEL [Suspect]
     Indication: MENTAL DISORDER
     Route: 048
     Dates: start: 20011201
  2. HALDOL [Concomitant]
     Dates: start: 20011201
  3. COGENTIN [Concomitant]
     Dates: start: 20011201

REACTIONS (3)
  - DIABETES MELLITUS [None]
  - NEUROLEPTIC MALIGNANT SYNDROME [None]
  - TYPE 2 DIABETES MELLITUS [None]
